FAERS Safety Report 10632327 (Version 1)
Quarter: 2014Q4

REPORT INFORMATION
  Report Type: Spontaneous
  Country: US (occurrence: US)
  Receive Date: 20141205
  Receipt Date: 20141205
  Transmission Date: 20150529
  Serious: No
  Sender: FDA-Public Use
  Company Number: US-BRISTOL-MYERS SQUIBB COMPANY-21179189

PATIENT
  Sex: Female

DRUGS (1)
  1. ORENCIA [Suspect]
     Active Substance: ABATACEPT
     Dosage: 7 NUMBERS ON BOX ABOVE LOT: 1292705?7 NUMBERS ON SYRINGES ABOVE LOT: 1292675
     Dates: start: 201309

REACTIONS (5)
  - Nausea [Unknown]
  - Product quality issue [Unknown]
  - Adverse event [Unknown]
  - Injection site pain [Unknown]
  - Malaise [Unknown]

NARRATIVE: CASE EVENT DATE: 2014
